FAERS Safety Report 6393991-3 (Version None)
Quarter: 2009Q4

REPORT INFORMATION
  Report Type: 
  Country: None (occurrence: None)
  Receive Date: 20091008
  Receipt Date: 20090929
  Transmission Date: 20100525
  Serious: Yes (Hospitalization)
  Sender: FDA-Public Use
  Company Number: SE-GILEAD-E2B_00000458

PATIENT
  Sex: Female

DRUGS (1)
  1. AMBRISENTAN [Suspect]
     Indication: HYPERTENSION
     Dates: start: 20090923

REACTIONS (1)
  - HYPOAESTHESIA ORAL [None]
